FAERS Safety Report 5319424-3 (Version None)
Quarter: 2007Q2

REPORT INFORMATION
  Report Type: 
  Country: None (occurrence: None)
  Receive Date: 20070508
  Receipt Date: 20070425
  Transmission Date: 20071010
  Serious: Yes (Other)
  Sender: FDA-Public Use
  Company Number: US-ELI_LILLY_AND_COMPANY-US_990318659

PATIENT
  Age: 66 Year
  Sex: Female
  Weight: 60 kg

DRUGS (15)
  1. MAGNESIUM SULFATE [Concomitant]
     Indication: OSTEOPOROSIS
     Dosage: UNK, OTHER
  2. CALCIUM CHLORIDE [Concomitant]
     Indication: OSTEOPOROSIS
  3. VITAMIN D [Concomitant]
     Indication: OSTEOPOROSIS
  4. LIDOCAINE HCL [Concomitant]
     Dates: start: 20020101
  5. LEVOXYL [Concomitant]
  6. EVISTA [Suspect]
     Indication: OSTEOPOROSIS
     Dosage: 60 MG, DAILY (1/D)
     Route: 048
     Dates: start: 19980301
  7. DIURETIC [Concomitant]
     Indication: ABDOMINAL DISTENSION
     Dosage: UNK, DAILY (1/D)
     Route: 048
  8. SYNTHROID [Concomitant]
     Indication: HYPOTHYROIDISM
     Dosage: 0.75 MG, DAILY (1/D)
     Route: 048
  9. MIACALCIN [Concomitant]
     Dosage: UNK, UNKNOWN
     Route: 045
     Dates: start: 19970301
  10. MULTI-VITAMIN [Concomitant]
     Indication: HYPOVITAMINOSIS
     Dosage: UNK, DAILY (1/D)
     Route: 048
  11. CITRACAL [Concomitant]
     Dosage: UNK, UNKNOWN
     Route: 048
  12. VITAMINS [Concomitant]
     Dosage: UNK, UNKNOWN
     Route: 048
  13. FOLIC ACID [Concomitant]
     Dosage: UNK, UNKNOWN
  14. COENZYME Q10 [Concomitant]
     Indication: BLOOD CHOLESTEROL INCREASED
  15. LEVOFLOXACIN [Concomitant]
     Dosage: UNK, UNKNOWN

REACTIONS (35)
  - ABDOMINAL DISCOMFORT [None]
  - ABDOMINAL DISTENSION [None]
  - ABDOMINAL PAIN [None]
  - ARTHRALGIA [None]
  - BACK PAIN [None]
  - BLOOD CHOLESTEROL INCREASED [None]
  - CATARACT [None]
  - COLON NEOPLASM [None]
  - CONSTIPATION [None]
  - DENTAL CARIES [None]
  - DEPRESSION [None]
  - DIARRHOEA [None]
  - ERYTHEMA [None]
  - EYE PAIN [None]
  - EYE PRURITUS [None]
  - EYE SWELLING [None]
  - FLANK PAIN [None]
  - GAIT DISTURBANCE [None]
  - HEADACHE [None]
  - HOT FLUSH [None]
  - HYPERSENSITIVITY [None]
  - INJECTION SITE DISCOLOURATION [None]
  - INJURY CORNEAL [None]
  - JOINT SWELLING [None]
  - MOOD SWINGS [None]
  - MUSCLE SPASMS [None]
  - MUSCULOSKELETAL STIFFNESS [None]
  - NEOPLASM MALIGNANT [None]
  - NERVOUSNESS [None]
  - OEDEMA PERIPHERAL [None]
  - PAIN IN EXTREMITY [None]
  - PERIPHERAL COLDNESS [None]
  - SINUS CONGESTION [None]
  - SWELLING [None]
  - WEIGHT INCREASED [None]
